FAERS Safety Report 18705313 (Version 2)
Quarter: 2021Q1

REPORT INFORMATION
  Report Type: Spontaneous
  Country: US (occurrence: US)
  Receive Date: 20210106
  Receipt Date: 20210111
  Transmission Date: 20210419
  Serious: No
  Sender: FDA-Public Use
  Company Number: US-AMGEN-USASP2020213019

PATIENT
  Age: 79 Year
  Sex: Female
  Weight: 84.81 kg

DRUGS (1)
  1. REPATHA [Suspect]
     Active Substance: EVOLOCUMAB
     Indication: BLOOD CHOLESTEROL INCREASED
     Dosage: 140 MILLIGRAM, Q2WK
     Route: 065
     Dates: start: 20200912

REACTIONS (2)
  - Accidental exposure to product [Unknown]
  - Hypertension [Unknown]

NARRATIVE: CASE EVENT DATE: 20200926
